FAERS Safety Report 5831549-2 (Version None)
Quarter: 2008Q3

REPORT INFORMATION
  Report Type: 
  Country: None (occurrence: None)
  Receive Date: 20080730
  Receipt Date: 20080724
  Transmission Date: 20090109
  Serious: Yes (Other)
  Sender: FDA-Public Use
  Company Number: SPV1-2008-01461

PATIENT
  Age: 29 Year
  Sex: Male
  Weight: 99.8 kg

DRUGS (1)
  1. VYVANSE [Suspect]
     Indication: ATTENTION DEFICIT/HYPERACTIVITY DISORDER
     Dosage: 30 MG, 1X/DAY:QD, ORAL
     Route: 048
     Dates: start: 20080401, end: 20080401

REACTIONS (4)
  - AGGRESSION [None]
  - AGITATION [None]
  - ANGER [None]
  - SUICIDAL IDEATION [None]
